FAERS Safety Report 6636400-9 (Version None)
Quarter: 2010Q1

REPORT INFORMATION
  Report Type: 
  Country: None (occurrence: None)
  Receive Date: 20100316
  Receipt Date: 20100311
  Transmission Date: 20100710
  Serious: Yes (Hospitalization)
  Sender: FDA-Public Use
  Company Number: US-ELI_LILLY_AND_COMPANY-US201003003196

PATIENT
  Sex: Female

DRUGS (10)
  1. HUMALOG MIX 75/25 [Suspect]
     Indication: DIABETES MELLITUS
     Dosage: 44 U, EACH MORNING
  2. HUMALOG MIX 75/25 [Suspect]
     Dosage: 44 U, OTHER
  3. POTASSIUM [Concomitant]
  4. FUROSEMIDE [Concomitant]
  5. LIPITOR [Concomitant]
  6. CARVEDILOL [Concomitant]
  7. NIASPAN [Concomitant]
  8. LEXAPRO [Concomitant]
  9. PLAVIX [Concomitant]
  10. DIOVAN [Concomitant]

REACTIONS (6)
  - CARDIAC PACEMAKER INSERTION [None]
  - DYSPNOEA [None]
  - NEUROPATHY PERIPHERAL [None]
  - PERIPHERAL ARTERIAL OCCLUSIVE DISEASE [None]
  - PRODUCT CONTAINER SEAL ISSUE [None]
  - PRODUCT PACKAGING QUANTITY ISSUE [None]
